FAERS Safety Report 19979820 (Version 1)
Quarter: 2021Q4

REPORT INFORMATION
  Report Type: Spontaneous
  Country: US (occurrence: US)
  Receive Date: 20211021
  Receipt Date: 20211021
  Transmission Date: 20220304
  Serious: Yes (Other)
  Sender: FDA-Public Use
  Company Number: US-ROCHE-2933110

PATIENT
  Sex: Female

DRUGS (3)
  1. OCREVUS [Suspect]
     Active Substance: OCRELIZUMAB
     Indication: Relapsing multiple sclerosis
     Dosage: EVERY SIX MONTHS
     Route: 042
  2. AVONEX [Concomitant]
     Active Substance: INTERFERON BETA-1A
  3. COPAXONE [Concomitant]
     Active Substance: GLATIRAMER ACETATE

REACTIONS (6)
  - COVID-19 [Unknown]
  - Feeling cold [Unknown]
  - Bone pain [Unknown]
  - Headache [Unknown]
  - Eye pain [Unknown]
  - Relapsing multiple sclerosis [Unknown]
